FAERS Safety Report 20204185 (Version 1)
Quarter: 2021Q4

REPORT INFORMATION
  Report Type: Spontaneous
  Country: US (occurrence: US)
  Receive Date: 20211220
  Receipt Date: 20211220
  Transmission Date: 20220303
  Serious: No
  Sender: FDA-Public Use
  Company Number: US-SANOFI-00893810

PATIENT
  Sex: Female

DRUGS (1)
  1. AMBIEN [Suspect]
     Active Substance: ZOLPIDEM TARTRATE
     Indication: Insomnia
     Dosage: 10 MG; DRUG STRUCTURE DOSAGE : 10MG DRUG INTERVAL DOSAGE : QHS DRUG TREATMENT DURATION: SEE NARRATIV

REACTIONS (3)
  - Insomnia [Unknown]
  - Anxiety [Unknown]
  - Drug effective for unapproved indication [Unknown]
